FAERS Safety Report 5208401-9 (Version None)
Quarter: 2007Q1

REPORT INFORMATION
  Report Type: 
  Country: None (occurrence: None)
  Receive Date: 20070115
  Receipt Date: 20070103
  Transmission Date: 20070707
  Serious: Yes (Hospitalization)
  Sender: FDA-Public Use
  Company Number: DE-SHR-DE-2006-018003

PATIENT
  Age: 65 Year
  Sex: Male
  Weight: 93 kg

DRUGS (7)
  1. CAMPATH 10 /1ML [Suspect]
     Dosage: 30 MG, UNK
     Route: 042
     Dates: start: 20050926, end: 20060223
  2. COTRIM DS [Concomitant]
     Indication: ANTIBIOTIC PROPHYLAXIS
     Route: 048
     Dates: start: 20051007
  3. FAMCICLOVIR [Concomitant]
     Indication: ANTIVIRAL PROPHYLAXIS
     Route: 048
     Dates: start: 20051209
  4. BROMAZEPAM [Concomitant]
     Indication: SEDATIVE THERAPY
     Route: 048
     Dates: start: 20031001
  5. PANTOPRAZOLE SODIUM [Concomitant]
     Route: 048
     Dates: start: 20050925
  6. TRAMADOL HCL [Concomitant]
     Indication: PAIN
     Route: 048
     Dates: start: 20060104
  7. FLUDARABINE PHOSPHAT (SH L 573) [Suspect]
     Dosage: 63 MG, UNK
     Route: 042
     Dates: start: 20051004, end: 20060223

REACTIONS (1)
  - DIFFUSE LARGE B-CELL LYMPHOMA [None]
